FAERS Safety Report 19966819 (Version 1)
Quarter: 2021Q4

REPORT INFORMATION
  Report Type: Spontaneous
  Country: CA (occurrence: CA)
  Receive Date: 20211018
  Receipt Date: 20211018
  Transmission Date: 20220303
  Serious: Yes (Other)
  Sender: FDA-Public Use
  Company Number: CA-BAXTER-2021BAX031950

PATIENT
  Sex: Male

DRUGS (1)
  1. SODIUM BICARBONATE [Suspect]
     Active Substance: SODIUM BICARBONATE
     Indication: Haemodialysis
     Route: 010

REACTIONS (6)
  - Loss of consciousness [Recovering/Resolving]
  - Sepsis [Unknown]
  - Catheter site infection [Unknown]
  - Haemorrhage [Unknown]
  - Device alarm issue [Unknown]
  - Product administration error [Unknown]

NARRATIVE: CASE EVENT DATE: 20211001
